FAERS Safety Report 6262248-3 (Version None)
Quarter: 2009Q3

REPORT INFORMATION
  Report Type: 
  Country: None (occurrence: None)
  Receive Date: 20090709
  Receipt Date: 20090626
  Transmission Date: 20100115
  Serious: Yes (Hospitalization)
  Sender: FDA-Public Use
  Company Number: ES-PURDUE-USA-2009-0039009

PATIENT
  Age: 88 Year
  Sex: Female

DRUGS (1)
  1. TRAMADOL HCL [Suspect]
     Indication: DISLOCATION OF JOINT PROSTHESIS
     Dosage: 100 MG, DAILY
     Route: 048
     Dates: start: 20081201, end: 20081216

REACTIONS (2)
  - CONFUSIONAL STATE [None]
  - PAIN [None]
